FAERS Safety Report 18855961 (Version 1)
Quarter: 2021Q1

REPORT INFORMATION
  Report Type: Spontaneous
  Country: US (occurrence: US)
  Receive Date: 20210206
  Receipt Date: 20210206
  Transmission Date: 20210420
  Serious: Yes (Hospitalization)
  Sender: FDA-Public Use
  Company Number: US-TEVA-2021-US-1875752

PATIENT
  Age: 26 Year
  Sex: Female
  Weight: 67.1 kg

DRUGS (3)
  1. PENICILLIN [Concomitant]
     Active Substance: PENICILLIN
     Dosage: 500 MILLIGRAM DAILY;
     Dates: start: 20200918, end: 20200927
  2. BUPROPION HYDROCHLORIDE. [Suspect]
     Active Substance: BUPROPION HYDROCHLORIDE
     Dosage: 300 MILLIGRAM DAILY;
     Route: 048
     Dates: start: 201910
  3. MIRENA [Concomitant]
     Active Substance: LEVONORGESTREL
     Dates: start: 202001

REACTIONS (1)
  - Intentional self-injury [Recovering/Resolving]

NARRATIVE: CASE EVENT DATE: 20200921
